FAERS Safety Report 25987634 (Version 1)
Quarter: 2025Q4

REPORT INFORMATION
  Report Type: Spontaneous
  Country: EU (occurrence: EU)
  Receive Date: 20251103
  Receipt Date: 20251103
  Transmission Date: 20260118
  Serious: Yes (Other)
  Sender: BRISTOL-MYERS SQUIBB COMPANY
  Company Number: EU-BRISTOL-MYERS SQUIBB COMPANY-2025-147467

PATIENT
  Age: 61 Year
  Sex: Female

DRUGS (7)
  1. IPILIMUMAB [Suspect]
     Active Substance: IPILIMUMAB
     Indication: Malignant melanoma
     Dosage: 4 CYCLE
     Dates: start: 201310, end: 201312
  2. IPILIMUMAB [Suspect]
     Active Substance: IPILIMUMAB
     Dosage: 4 CYCLE
     Dates: start: 201912, end: 202001
  3. DABRAFENIB [Suspect]
     Active Substance: DABRAFENIB
     Indication: Malignant melanoma
  4. TAFINLAR [Suspect]
     Active Substance: DABRAFENIB MESYLATE
     Indication: Malignant melanoma
     Dates: start: 201401, end: 201908
  5. MEKINIST [Suspect]
     Active Substance: TRAMETINIB DIMETHYL SULFOXIDE
     Indication: Malignant melanoma
     Dates: start: 201401, end: 201908
  6. COBIMETINIB [Suspect]
     Active Substance: COBIMETINIB
     Indication: Malignant melanoma
     Dates: start: 201401, end: 201908
  7. VEMURAFENIB [Suspect]
     Active Substance: VEMURAFENIB
     Indication: Malignant melanoma
     Dates: start: 201401, end: 201908

REACTIONS (7)
  - Malignant neoplasm progression [Unknown]
  - Pyrexia [Unknown]
  - Panniculitis [Unknown]
  - Proctitis [Unknown]
  - Haematochezia [Unknown]
  - Acrochordon [Unknown]
  - Diverticulum intestinal [Unknown]

NARRATIVE: CASE EVENT DATE: 20190301
